FAERS Safety Report 19495420 (Version 1)
Quarter: 2021Q3

REPORT INFORMATION
  Report Type: Spontaneous
  Country: GB (occurrence: GB)
  Receive Date: 20210706
  Receipt Date: 20210706
  Transmission Date: 20211014
  Serious: Yes (Hospitalization, Other)
  Sender: FDA-Public Use
  Company Number: GB-AUROBINDO-AUR-APL-2021-028138

PATIENT
  Age: 19 Year
  Sex: Male
  Weight: 83.46 kg

DRUGS (3)
  1. SERTRALINE [Suspect]
     Active Substance: SERTRALINE HYDROCHLORIDE
     Indication: ILL-DEFINED DISORDER
     Dosage: 50 MILLIGRAM
     Route: 048
     Dates: start: 20210512, end: 20210527
  2. ACCORD?UK MIRTAZAPINE [Suspect]
     Active Substance: MIRTAZAPINE
     Indication: ILL-DEFINED DISORDER
     Dosage: 15 MILLIGRAM
     Route: 048
     Dates: start: 20210609, end: 20210617
  3. PHENERGAN [Concomitant]
     Active Substance: PROMETHAZINE HYDROCHLORIDE
     Indication: ILL-DEFINED DISORDER
     Dosage: UNK
     Route: 065

REACTIONS (4)
  - Medication error [Unknown]
  - Suicidal ideation [Recovered/Resolved]
  - Intentional self-injury [Recovering/Resolving]
  - Insomnia [Recovering/Resolving]

NARRATIVE: CASE EVENT DATE: 20210519
